FAERS Safety Report 18627939 (Version 1)
Quarter: 2020Q4

REPORT INFORMATION
  Report Type: Spontaneous
  Country: US (occurrence: US)
  Receive Date: 20201217
  Receipt Date: 20201217
  Transmission Date: 20210114
  Serious: No
  Sender: FDA-Public Use
  Company Number: US-CURIUM-200500214

PATIENT
  Age: 35 Year
  Sex: Female

DRUGS (1)
  1. TECHNESCAN MAG3 [Suspect]
     Active Substance: TECHNETIUM TC-99M TIATIDE

REACTIONS (3)
  - Feeling hot [Unknown]
  - Flushing [Unknown]
  - Rash [Recovered/Resolved]
